FAERS Safety Report 6475953-0 (Version None)
Quarter: 2009Q4

REPORT INFORMATION
  Report Type: 
  Country: None (occurrence: None)
  Receive Date: 20091204
  Receipt Date: 20090218
  Transmission Date: 20100525
  Serious: No
  Sender: FDA-Public Use
  Company Number: US-AMGEN-KDL327466

PATIENT
  Sex: Female

DRUGS (4)
  1. ENBREL [Suspect]
     Indication: PSORIASIS
     Route: 058
     Dates: start: 20040920
  2. UNSPECIFIED TOPICAL PRODUCT [Concomitant]
  3. INSULIN [Concomitant]
  4. LISINOPRIL [Concomitant]

REACTIONS (6)
  - CARTILAGE INJURY [None]
  - LOCALISED INFECTION [None]
  - PAIN IN EXTREMITY [None]
  - POST PROCEDURAL INFECTION [None]
  - THERMAL BURN [None]
  - TOOTH EXTRACTION [None]
